FAERS Safety Report 7806550-X (Version None)
Quarter: 2011Q4

REPORT INFORMATION
  Report Type: 
  Country: None (occurrence: None)
  Receive Date: 20111011
  Receipt Date: 20110929
  Transmission Date: 20120403
  Serious: Yes (Other)
  Sender: FDA-Public Use
  Company Number: US-TYCO HEALTHCARE/MALLINCKRODT-T201101950

PATIENT
  Sex: Female

DRUGS (3)
  1. FLEXERIL [Concomitant]
     Dosage: 10 MG, EVERY 8 HOURS
  2. OXYCODONE/ACETAMINOPHEN [Suspect]
     Indication: BACK PAIN
     Dosage: WEANING SCHEDULE
     Dates: end: 20110928
  3. OXYCODONE/ACETAMINOPHEN [Suspect]
     Indication: CANCER PAIN
     Dosage: 10/325 MG, 1-2 TABS EVERY 4-6 HRS PRN, TWO DOSES
     Route: 048
     Dates: start: 20110919

REACTIONS (2)
  - DISORIENTATION [None]
  - HALLUCINATION [None]
